FAERS Safety Report 7322174-5 (Version None)
Quarter: 2011Q1

REPORT INFORMATION
  Report Type: 
  Country: None (occurrence: None)
  Receive Date: 20110228
  Receipt Date: 20110223
  Transmission Date: 20110831
  Serious: Yes (Life-Threatening)
  Sender: FDA-Public Use
  Company Number: JP-MERCK-1011USA03762

PATIENT
  Age: 31 Year
  Sex: Male
  Weight: 75 kg

DRUGS (3)
  1. SELARA [Suspect]
     Indication: HYPERTENSION
     Route: 048
     Dates: start: 20100904
  2. HYZAAR [Suspect]
     Indication: HYPERTENSION
     Route: 048
     Dates: start: 20090501, end: 20100907
  3. CARDENALIN [Concomitant]
     Route: 048
     Dates: start: 20100401

REACTIONS (3)
  - HEAT ILLNESS [None]
  - HYPONATRAEMIA [None]
  - DEHYDRATION [None]
